FAERS Safety Report 4950521-8 (Version None)
Quarter: 2006Q1

REPORT INFORMATION
  Report Type: 
  Country: None (occurrence: None)
  Receive Date: 20060322
  Receipt Date: 20060315
  Transmission Date: 20060701
  Serious: Yes (Hospitalization)
  Sender: FDA-Public Use
  Company Number: ZA-GLAXOSMITHKLINE-B0416506A

PATIENT
  Age: 18 Year
  Sex: Male

DRUGS (2)
  1. ZOFRAN [Suspect]
     Route: 065
     Dates: start: 20060201
  2. ANAESTHETIC (UNSPECIFIED) [Concomitant]
     Route: 065

REACTIONS (1)
  - HEPATITIS FULMINANT [None]
